FAERS Safety Report 11543979 (Version 1)
Quarter: 2015Q3

REPORT INFORMATION
  Report Type: Spontaneous
  Country: US (occurrence: US)
  Receive Date: 20150924
  Receipt Date: 20150924
  Transmission Date: 20151125
  Serious: No
  Sender: FDA-Public Use
  Company Number: CHPA2015US005104

PATIENT
  Age: 55 Year
  Sex: Female

DRUGS (2)
  1. DICLOFENAC [Suspect]
     Active Substance: DICLOFENAC
     Indication: ARTHRITIS
     Dosage: 2 DF, UNK
     Route: 065
     Dates: start: 20150406, end: 20150406
  2. VOLTAREN [Suspect]
     Active Substance: DICLOFENAC SODIUM
     Indication: ARTHRITIS
     Dosage: SIZE OF THE CAP, ONCE/SINGLE
     Route: 061
     Dates: start: 20150410, end: 20150410

REACTIONS (9)
  - Incorrect dose administered [Unknown]
  - Drug administered at inappropriate site [Unknown]
  - Wrong technique in product usage process [Unknown]
  - Abdominal pain upper [Recovered/Resolved]
  - Application site swelling [Recovered/Resolved]
  - Diarrhoea [Recovered/Resolved]
  - Application site erythema [Recovered/Resolved]
  - Skin burning sensation [Recovered/Resolved]
  - Application site pruritus [Recovered/Resolved]

NARRATIVE: CASE EVENT DATE: 20150406
